FAERS Safety Report 7285481-0 (Version None)
Quarter: 2011Q1

REPORT INFORMATION
  Report Type: 
  Country: None (occurrence: None)
  Receive Date: 20110210
  Receipt Date: 20110207
  Transmission Date: 20110831
  Serious: Yes (Other)
  Sender: FDA-Public Use
  Company Number: IN-ROXANE LABORATORIES, INC.-2011-RO-00147RO

PATIENT
  Age: 27 Year
  Sex: Male

DRUGS (2)
  1. CARBAMAZEPINE [Suspect]
     Indication: MANIA
  2. LITHIUM CARBONATE [Suspect]
     Indication: MANIA

REACTIONS (1)
  - MYOCLONUS [None]
